FAERS Safety Report 6902449-1 (Version None)
Quarter: 2010Q3

REPORT INFORMATION
  Report Type: 
  Country: None (occurrence: None)
  Receive Date: 20100803
  Receipt Date: 20080527
  Transmission Date: 20110219
  Serious: Yes (Other)
  Sender: FDA-Public Use
  Company Number: US-PFIZER INC-2008043027

PATIENT
  Sex: Female
  Weight: 55.3 kg

DRUGS (2)
  1. LYRICA [Suspect]
     Indication: FIBROMYALGIA
  2. NEURONTIN [Suspect]
     Indication: FIBROMYALGIA
     Dates: start: 20050101

REACTIONS (3)
  - ANGER [None]
  - DRUG INEFFECTIVE [None]
  - URTICARIA [None]
